FAERS Safety Report 7394543-9 (Version None)
Quarter: 2011Q2

REPORT INFORMATION
  Report Type: 
  Country: None (occurrence: None)
  Receive Date: 20110405
  Receipt Date: 20110331
  Transmission Date: 20111010
  Serious: Yes (Death, Hospitalization, Other)
  Sender: FDA-Public Use
  Company Number: PHFR2011GB02235

PATIENT
  Sex: Male

DRUGS (2)
  1. PAROXETINE HCL [Concomitant]
     Indication: DEPRESSION
     Dosage: 50 MG, UNK
     Route: 048
  2. CLOZARIL [Suspect]
     Indication: SCHIZOPHRENIA
     Dosage: 400 MG, UNK
     Route: 048
     Dates: start: 19960901

REACTIONS (10)
  - DIARRHOEA [None]
  - VOMITING [None]
  - WEIGHT DECREASED [None]
  - PYREXIA [None]
  - ABDOMINAL STRANGULATED HERNIA [None]
  - ANTIPSYCHOTIC DRUG LEVEL INCREASED [None]
  - MALAISE [None]
  - NAUSEA [None]
  - OVERWEIGHT [None]
  - CARDIAC ARREST [None]
